FAERS Safety Report 10879647 (Version 1)
Quarter: 2015Q1

REPORT INFORMATION
  Report Type: Spontaneous
  Country: CN (occurrence: CN)
  Receive Date: 20150302
  Receipt Date: 20150302
  Transmission Date: 20150721
  Serious: Yes (Other)
  Sender: FDA-Public Use
  Company Number: CN-CELGENE-CHN-2015024582

PATIENT
  Age: 61 Year
  Sex: Male
  Weight: 55 kg

DRUGS (5)
  1. EPO [Concomitant]
     Active Substance: ERYTHROPOIETIN
     Indication: MYELODYSPLASTIC SYNDROME
     Route: 065
  2. THROMBOPOETIN [Concomitant]
     Indication: MYELODYSPLASTIC SYNDROME
     Dosage: 400 MILLIGRAM/KILOGRAM
     Route: 065
  3. THALIDOMIDE [Suspect]
     Active Substance: THALIDOMIDE
     Indication: MYELODYSPLASTIC SYNDROME
     Route: 048
  4. THALIDOMIDE [Suspect]
     Active Substance: THALIDOMIDE
     Indication: REFRACTORY CYTOPENIA WITH MULTILINEAGE DYSPLASIA
  5. INTERLEUKINA 11 [Concomitant]
     Indication: MYELODYSPLASTIC SYNDROME
     Route: 065

REACTIONS (4)
  - No therapeutic response [Unknown]
  - Refractoriness to platelet transfusion [Recovered/Resolved]
  - Blood product transfusion dependent [Unknown]
  - Mucosal haemorrhage [Unknown]

NARRATIVE: CASE EVENT DATE: 201203
